FAERS Safety Report 20656061 (Version 3)
Quarter: 2022Q2

REPORT INFORMATION
  Report Type: Spontaneous
  Country: EG (occurrence: None)
  Receive Date: 20220330
  Receipt Date: 20220510
  Transmission Date: 20220721
  Serious: Yes (Other)
  Sender: FDA-Public Use
  Company Number: EG-Merck Healthcare KGaA-9308847

PATIENT
  Sex: Female
  Weight: 70 kg

DRUGS (5)
  1. GLUCOPHAGE XR [Suspect]
     Active Substance: METFORMIN HYDROCHLORIDE
     Indication: Diabetes mellitus
  2. GLUCOPHAGE [Suspect]
     Active Substance: METFORMIN HYDROCHLORIDE
     Indication: Diabetes mellitus
  3. AMARYL [Concomitant]
     Active Substance: GLIMEPIRIDE
     Indication: Diabetes mellitus
  4. STEVIA [STEVIA REBAUDIANA] [Concomitant]
     Indication: Product used for unknown indication
  5. BENFOTIAMINE\CYANOCOBALAMIN\PYRIDOXINE HYDROCHLORIDE [Concomitant]
     Active Substance: BENFOTIAMINE\CYANOCOBALAMIN\PYRIDOXINE HYDROCHLORIDE
     Indication: Product used for unknown indication

REACTIONS (9)
  - Angina pectoris [Unknown]
  - Dry skin [Unknown]
  - Blood glucose increased [Unknown]
  - Hyperglycaemia [Unknown]
  - Chills [Unknown]
  - Hyperhidrosis [Unknown]
  - Weight decreased [Unknown]
  - Abdominal pain upper [Unknown]
  - Treatment noncompliance [Unknown]
